FAERS Safety Report 11507631 (Version 1)
Quarter: 2015Q3

REPORT INFORMATION
  Report Type: Spontaneous
  Country: US (occurrence: US)
  Receive Date: 20150903
  Receipt Date: 20150903
  Transmission Date: 20151125
  Serious: No
  Sender: FDA-Public Use
  Company Number: US-ELI_LILLY_AND_COMPANY-US200908006221

PATIENT
  Sex: Female

DRUGS (3)
  1. HUMALOG [Suspect]
     Active Substance: INSULIN LISPRO
  2. HUMALOG [Suspect]
     Active Substance: INSULIN LISPRO
     Dosage: UNK, UNK
     Dates: start: 200808
  3. HUMALOG [Suspect]
     Active Substance: INSULIN LISPRO

REACTIONS (10)
  - Blood glucose increased [Unknown]
  - Incorrect dose administered [Unknown]
  - Disorientation [Unknown]
  - Muscle spasms [Unknown]
  - Musculoskeletal stiffness [Unknown]
  - Incorrect dose administered [Unknown]
  - Blood glucose decreased [Unknown]
  - Cataract [Unknown]
  - Anxiety [Unknown]
  - Lethargy [Unknown]

NARRATIVE: CASE EVENT DATE: 20090826
